FAERS Safety Report 9152779 (Version 2)
Quarter: 2013Q1

REPORT INFORMATION
  Report Type: Report from Study
  Country: DE (occurrence: DE)
  Receive Date: 20130308
  Receipt Date: 20130320
  Transmission Date: 20140127
  Serious: Yes (Hospitalization)
  Sender: FDA-Public Use
  Company Number: DE-009507513-1303DEU002172

PATIENT
  Sex: Female

DRUGS (2)
  1. MK-0217 [Suspect]
     Indication: OSTEOPOROSIS
     Route: 048
  2. PLACEBO [Suspect]
     Indication: OSTEOPOROSIS
     Dosage: UNK
     Route: 048

REACTIONS (5)
  - Acute myocardial infarction [Unknown]
  - Acute coronary syndrome [Unknown]
  - Coronary artery disease [Unknown]
  - Atrial fibrillation [Unknown]
  - Tachyarrhythmia [Unknown]
